FAERS Safety Report 12460061 (Version 1)
Quarter: 2016Q2

REPORT INFORMATION
  Report Type: Spontaneous
  Country: US (occurrence: US)
  Receive Date: 20160613
  Receipt Date: 20160613
  Transmission Date: 20160815
  Serious: No
  Sender: FDA-Public Use
  Company Number: US-PFIZER INC-2016283917

PATIENT
  Age: 65 Year
  Sex: Female

DRUGS (2)
  1. NEURONTIN [Suspect]
     Active Substance: GABAPENTIN
  2. BIAXIN [Suspect]
     Active Substance: CLARITHROMYCIN

REACTIONS (1)
  - Drug hypersensitivity [Unknown]
